FAERS Safety Report 9629960 (Version 2)
Quarter: 2014Q1

REPORT INFORMATION
  Report Type: Spontaneous
  Country: DK (occurrence: DK)
  Receive Date: 20131017
  Receipt Date: 20140331
  Transmission Date: 20141002
  Serious: Yes (Death, Hospitalization)
  Sender: FDA-Public Use
  Company Number: DK-ACTAVIS-2013-18774

PATIENT
  Age: 69 Year
  Sex: Female
  Weight: 69 kg

DRUGS (1)
  1. LETROZOLE (ARROW GENERICS LTD) [Suspect]
     Indication: ANTIOESTROGEN THERAPY
     Dosage: 2.5 MG, DAILY
     Route: 048
     Dates: start: 20130708, end: 20130725

REACTIONS (12)
  - Mesenteric artery embolism [Fatal]
  - Multi-organ failure [Fatal]
  - Metabolic acidosis [Fatal]
  - Dizziness [Not Recovered/Not Resolved]
  - Nausea [Recovered/Resolved]
  - Vomiting [Not Recovered/Not Resolved]
  - Insomnia [Not Recovered/Not Resolved]
  - Dyspepsia [Not Recovered/Not Resolved]
  - Abdominal pain [Not Recovered/Not Resolved]
  - Malaise [Not Recovered/Not Resolved]
  - Coma [Not Recovered/Not Resolved]
  - Weight decreased [Not Recovered/Not Resolved]
